FAERS Safety Report 15131392 (Version 3)
Quarter: 2018Q3

REPORT INFORMATION
  Report Type: Report from Study
  Country: US (occurrence: US)
  Receive Date: 20180711
  Receipt Date: 20180917
  Transmission Date: 20181010
  Serious: Yes (Other)
  Sender: FDA-Public Use
  Company Number: US-MALLINCKRODT-T201802698

PATIENT
  Age: 50 Year
  Sex: Female

DRUGS (2)
  1. REPOSITORY CORTICOTROPIN INJECTION [Suspect]
     Active Substance: CORTICOTROPIN
     Indication: NEPHROTIC SYNDROME
     Dosage: 40 UNITS/0.5 ML, 2 TIMES PER WEEK TUESDAY/SATURDAY
     Route: 058
     Dates: start: 20180619
  2. REPOSITORY CORTICOTROPIN INJECTION [Suspect]
     Active Substance: CORTICOTROPIN
     Indication: GLOMERULONEPHRITIS MINIMAL LESION
     Dosage: 80 UNITS/1 ML, 2 TIMES PER WEEK, TUESDAY/SATURDAY
     Route: 058
     Dates: start: 2018

REACTIONS (9)
  - Immunodeficiency [Not Recovered/Not Resolved]
  - Limb discomfort [Unknown]
  - Musculoskeletal discomfort [Unknown]
  - Injection site erythema [Recovering/Resolving]
  - Injection site pain [Recovering/Resolving]
  - Hyperaesthesia [Not Recovered/Not Resolved]
  - Fatigue [Not Recovered/Not Resolved]
  - Injection site pruritus [Recovering/Resolving]
  - Asthenia [Not Recovered/Not Resolved]

NARRATIVE: CASE EVENT DATE: 2018
